FAERS Safety Report 6466095-9 (Version None)
Quarter: 2009Q4

REPORT INFORMATION
  Report Type: 
  Country: None (occurrence: None)
  Receive Date: 20091201
  Receipt Date: 20091201
  Transmission Date: 20100525
  Serious: No
  Sender: FDA-Public Use
  Company Number: None

PATIENT
  Sex: Female
  Weight: 65.7716 kg

DRUGS (1)
  1. NITROFUR-100 MG. G FOR MACROBID BID CAP MYLAN [Suspect]
     Indication: CYSTITIS
     Dosage: 1 - CAPSULE TWICE DAILY 10 DAYS
     Dates: start: 20091027

REACTIONS (5)
  - CHILLS [None]
  - HEADACHE [None]
  - MYALGIA [None]
  - PAIN [None]
  - PYREXIA [None]
